FAERS Safety Report 7737199-5 (Version None)
Quarter: 2011Q3

REPORT INFORMATION
  Report Type: 
  Country: None (occurrence: None)
  Receive Date: 20110902
  Receipt Date: 20110822
  Transmission Date: 20111222
  Serious: Yes (Other)
  Sender: FDA-Public Use
  Company Number: 2011MA012375

PATIENT
  Age: 4 Year
  Sex: Male

DRUGS (1)
  1. CONSTULOSE [Suspect]
     Indication: CONSTIPATION
     Dosage: 2 ML; PO
     Route: 048

REACTIONS (1)
  - ANAPHYLACTIC REACTION [None]
